FAERS Safety Report 23780712 (Version 1)
Quarter: 2024Q2

REPORT INFORMATION
  Report Type: Spontaneous
  Country: US (occurrence: US)
  Receive Date: 20240425
  Receipt Date: 20240425
  Transmission Date: 20240716
  Serious: Yes (Other)
  Sender: FDA-Public Use
  Company Number: US-NOVOPROD-1206409

PATIENT
  Sex: Female

DRUGS (2)
  1. LEVEMIR [Suspect]
     Active Substance: INSULIN DETEMIR
     Indication: Type 2 diabetes mellitus
     Dosage: 84 IU, QD (26 UNITS, 28 UNITS, THEN 30 UNITS ONCE AT NIGHT)
     Route: 058
  2. NOVOLOG [Suspect]
     Active Substance: INSULIN ASPART
     Indication: Type 2 diabetes mellitus
     Dosage: 10 IU, TID
     Route: 058

REACTIONS (3)
  - Retinal haemorrhage [Not Recovered/Not Resolved]
  - Diabetic foot [Not Recovered/Not Resolved]
  - Blood glucose decreased [Recovered/Resolved]
